FAERS Safety Report 7674130-5 (Version None)
Quarter: 2011Q3

REPORT INFORMATION
  Report Type: 
  Country: None (occurrence: None)
  Receive Date: 20110810
  Receipt Date: 20110727
  Transmission Date: 20111222
  Serious: Yes (Other)
  Sender: FDA-Public Use
  Company Number: US-ELI_LILLY_AND_COMPANY-US201108000756

PATIENT
  Sex: Female

DRUGS (1)
  1. FORTEO [Suspect]
     Indication: OSTEOARTHRITIS
     Dosage: 20 UG, BID
     Dates: start: 20110201, end: 20110601

REACTIONS (6)
  - ABDOMINAL DISTENSION [None]
  - OFF LABEL USE [None]
  - OVERDOSE [None]
  - HYPERTENSION [None]
  - BONE PAIN [None]
  - WEIGHT INCREASED [None]
